FAERS Safety Report 11758959 (Version 1)
Quarter: 2015Q4

REPORT INFORMATION
  Report Type: Spontaneous
  Country: US (occurrence: US)
  Receive Date: 20151120
  Receipt Date: 20151120
  Transmission Date: 20160304
  Serious: No
  Sender: FDA-Public Use
  Company Number: US-ELI_LILLY_AND_COMPANY-US201209006562

PATIENT
  Age: 79 Year
  Sex: Female

DRUGS (2)
  1. EPOGEN [Concomitant]
     Active Substance: ERYTHROPOIETIN
     Indication: IMMUNE SYSTEM DISORDER
  2. FORTEO [Suspect]
     Active Substance: TERIPARATIDE
     Indication: OSTEOPOROSIS
     Dosage: UNK, QD

REACTIONS (7)
  - Paraesthesia [Unknown]
  - Arthralgia [Unknown]
  - Sleep disorder [Unknown]
  - Musculoskeletal discomfort [Unknown]
  - Abnormal dreams [Unknown]
  - Pain in extremity [Unknown]
  - Feeling abnormal [Unknown]
